FAERS Safety Report 6941926-4 (Version None)
Quarter: 2010Q3

REPORT INFORMATION
  Report Type: 
  Country: None (occurrence: None)
  Receive Date: 20100826
  Receipt Date: 20100817
  Transmission Date: 20110219
  Serious: Yes (Death, Other)
  Sender: FDA-Public Use
  Company Number: US-JNJFOC-20100700782

PATIENT
  Sex: Male
  Weight: 114.29 kg

DRUGS (5)
  1. TRAMADOL HYDROCHLORIDE [Suspect]
     Indication: PRODUCT USED FOR UNKNOWN INDICATION
     Route: 065
  2. OXYCONTIN [Interacting]
     Indication: BACK DISORDER
     Route: 065
  3. OXYCODONE HCL EXTENDED-RELEASE [Interacting]
     Indication: PRODUCT USED FOR UNKNOWN INDICATION
     Route: 065
  4. ALPRAZOLAM [Interacting]
     Indication: PRODUCT USED FOR UNKNOWN INDICATION
     Route: 065
  5. CARISOPRODOL [Interacting]
     Indication: PRODUCT USED FOR UNKNOWN INDICATION
     Route: 065

REACTIONS (9)
  - CHOLECYSTECTOMY [None]
  - DRUG INTERACTION [None]
  - DRUG TOXICITY [None]
  - GASTRECTOMY [None]
  - HYPERTENSIVE HEART DISEASE [None]
  - LEFT VENTRICULAR HYPERTROPHY [None]
  - MULTIPLE DRUG OVERDOSE ACCIDENTAL [None]
  - POTENTIATING DRUG INTERACTION [None]
  - ROUX LOOP CONVERSION [None]
